FAERS Safety Report 17818587 (Version 2)
Quarter: 2020Q2

REPORT INFORMATION
  Report Type: Report from Study
  Country: JP (occurrence: JP)
  Receive Date: 20200522
  Receipt Date: 20200529
  Transmission Date: 20200714
  Serious: Yes (Hospitalization)
  Sender: FDA-Public Use
  Company Number: JP-ALNYLAM PHARMACEUTICALS, INC.-ALN-2020-000707

PATIENT
  Age: 77 Year
  Sex: Male

DRUGS (14)
  1. POLARAMINE [Concomitant]
     Active Substance: DEXCHLORPHENIRAMINE MALEATE
     Indication: PROPHYLAXIS
     Dosage: 5 MILLIGRAM
     Route: 042
     Dates: start: 20191126
  2. CALONAL [Concomitant]
     Active Substance: ACETAMINOPHEN
     Indication: PROPHYLAXIS
     Dosage: 400 MILLIGRAM
     Route: 048
     Dates: start: 20191126
  3. PANVITAN [Concomitant]
     Active Substance: VITAMINS
     Indication: VITAMIN SUPPLEMENTATION
     Dosage: 1 GRAM
     Route: 048
     Dates: start: 20191126
  4. LYRICA [Concomitant]
     Active Substance: PREGABALIN
     Indication: HEREDITARY NEUROPATHIC AMYLOIDOSIS
     Dosage: 150 MILLIGRAM
     Route: 048
  5. GASTER [Concomitant]
     Active Substance: FAMOTIDINE
     Indication: PROPHYLAXIS
     Dosage: 20 MILLIGRAM
     Route: 042
     Dates: start: 20191126
  6. METHYCOBAL [Concomitant]
     Active Substance: METHYLCOBALAMIN
     Indication: HEREDITARY NEUROPATHIC AMYLOIDOSIS
     Dosage: 1500 MICROGRAM
     Route: 048
  7. URSODEOXYCHOLIC ACID [Concomitant]
     Active Substance: URSODIOL
     Indication: HEREDITARY NEUROPATHIC AMYLOIDOSIS
     Dosage: 300 MILLIGRAM
     Route: 048
  8. BIOFERMIN [Concomitant]
     Active Substance: DIETARY SUPPLEMENT\PROBIOTICS
     Indication: HEREDITARY NEUROPATHIC AMYLOIDOSIS
     Dosage: 3 DOSAGE FORM
     Route: 048
  9. MAGNESIUM OXIDE. [Concomitant]
     Active Substance: MAGNESIUM OXIDE
     Indication: HEREDITARY NEUROPATHIC AMYLOIDOSIS
     Dosage: 1989 MILLIGRAM
     Route: 048
  10. DEXART [Suspect]
     Active Substance: DEXAMETHASONE SODIUM PHOSPHATE
     Indication: PROPHYLAXIS
     Dosage: 9.9 MILLIGRAM
     Route: 042
     Dates: start: 20191126
  11. ONPATTRO [Suspect]
     Active Substance: PATISIRAN SODIUM
     Indication: HEREDITARY NEUROPATHIC AMYLOIDOSIS
     Dosage: 8 MILLILITER
     Route: 041
     Dates: start: 20191126
  12. PRAZAXA [Concomitant]
     Active Substance: DABIGATRAN ETEXILATE MESYLATE
     Indication: HEREDITARY NEUROPATHIC AMYLOIDOSIS
     Dosage: 220 MILLIGRAM
     Route: 048
  13. TEGRETOL [Concomitant]
     Active Substance: CARBAMAZEPINE
     Indication: HEREDITARY NEUROPATHIC AMYLOIDOSIS
     Dosage: 1.5 DOSAGE FORM
     Route: 048
  14. TAKECAB [Concomitant]
     Active Substance: VONOPRAZAN FUMARATE
     Indication: HEREDITARY NEUROPATHIC AMYLOIDOSIS
     Dosage: 1 DOSAGE FORM
     Route: 048

REACTIONS (2)
  - Urinary tract infection [Recovered/Resolved]
  - Lymphocyte count decreased [Recovering/Resolving]

NARRATIVE: CASE EVENT DATE: 20191211
